FAERS Safety Report 8222175-9 (Version None)
Quarter: 2012Q1

REPORT INFORMATION
  Report Type: 
  Country: None (occurrence: None)
  Receive Date: 20120320
  Receipt Date: 20120313
  Transmission Date: 20120608
  Serious: Yes (Hospitalization)
  Sender: FDA-Public Use
  Company Number: US-JNJFOC-20120107737

PATIENT
  Sex: Female
  Weight: 86.18 kg

DRUGS (7)
  1. METHOTREXATE [Concomitant]
     Indication: ARTHRITIS
     Route: 065
     Dates: start: 20060101
  2. PLAQUENIL [Concomitant]
     Indication: ARTHRITIS
     Route: 048
     Dates: start: 20060101
  3. ZOLOFT [Concomitant]
     Indication: DEPRESSION
     Route: 048
  4. REMICADE [Suspect]
     Indication: RHEUMATOID ARTHRITIS
     Route: 042
     Dates: end: 20100701
  5. REMICADE [Suspect]
     Route: 042
     Dates: start: 20060101
  6. FOLIC ACID [Concomitant]
     Indication: ARTHRITIS
     Route: 048
     Dates: start: 20060101
  7. MULTI-VITAMINS [Concomitant]
     Indication: NUTRITIONAL SUPPORT
     Route: 065

REACTIONS (9)
  - LIGAMENT DISORDER [None]
  - ASTHENIA [None]
  - DEPRESSION [None]
  - MENISCUS LESION [None]
  - ARTHRALGIA [None]
  - MUSCULOSKELETAL STIFFNESS [None]
  - FALL [None]
  - CLOSTRIDIAL INFECTION [None]
  - ANXIETY [None]
